FAERS Safety Report 12471747 (Version 1)
Quarter: 2016Q2

REPORT INFORMATION
  Report Type: Spontaneous
  Country: US (occurrence: None)
  Receive Date: 20160615
  Receipt Date: 20160615
  Transmission Date: 20160815
  Serious: Yes (Death)
  Sender: FDA-Public Use
  Company Number: None

PATIENT
  Age: 75 Year
  Sex: Male

DRUGS (1)
  1. SUTENT [Suspect]
     Active Substance: SUNITINIB MALATE
     Indication: PANCREATIC CARCINOMA
     Dosage: 25 G QD X 14 DAYS Q ORAL
     Route: 048
     Dates: start: 20160420, end: 20160611

REACTIONS (1)
  - Death [None]

NARRATIVE: CASE EVENT DATE: 20160612
